FAERS Safety Report 4420548-3 (Version None)
Quarter: 2004Q3

REPORT INFORMATION
  Report Type: 
  Country: None (occurrence: None)
  Receive Date: 20040809
  Receipt Date: 20040329
  Transmission Date: 20050211
  Serious: No
  Sender: FDA-Public Use
  Company Number: US-GLAXOSMITHKLINE-A0504869A

PATIENT
  Age: 61 Year
  Sex: Female

DRUGS (1)
  1. PAXIL CR [Suspect]
     Indication: ILL-DEFINED DISORDER
     Dosage: 12.5MG PER DAY
     Route: 048
     Dates: start: 20040101, end: 20040301

REACTIONS (3)
  - ASTHENIA [None]
  - CONSTIPATION [None]
  - OEDEMA PERIPHERAL [None]
